FAERS Safety Report 18523406 (Version 4)
Quarter: 2022Q4

REPORT INFORMATION
  Report Type: Spontaneous
  Country: US (occurrence: US)
  Receive Date: 20201119
  Receipt Date: 20221213
  Transmission Date: 20230112
  Serious: No
  Sender: FDA-Public Use
  Company Number: US-PFIZER INC-2020453894

PATIENT
  Age: 60 Year
  Sex: Male
  Weight: 151.93 kg

DRUGS (1)
  1. CAVERJECT [Suspect]
     Active Substance: ALPROSTADIL
     Indication: Erectile dysfunction
     Dosage: 1 DF 3X/WEEK

REACTIONS (3)
  - Memory impairment [Unknown]
  - Gait disturbance [Unknown]
  - Eye disorder [Not Recovered/Not Resolved]
